FAERS Safety Report 7374510-1 (Version None)
Quarter: 2011Q1

REPORT INFORMATION
  Report Type: 
  Country: None (occurrence: None)
  Receive Date: 20110325
  Receipt Date: 20110131
  Transmission Date: 20110831
  Serious: No
  Sender: FDA-Public Use
  Company Number: US-MYLANLABS-2011S1002312

PATIENT
  Age: 50 Year
  Sex: Male

DRUGS (10)
  1. OMEPRAZOLE [Concomitant]
     Dates: start: 20090101
  2. WELLBUTRIN XL [Concomitant]
     Dates: start: 20090101
  3. PERCOCET [Concomitant]
     Dates: start: 20100401
  4. MORPHINE SULFATE [Concomitant]
     Dosage: ER FORMULATION
  5. LYRICA [Concomitant]
     Dates: start: 20080101
  6. FENTANYL-100 [Suspect]
     Route: 062
     Dates: start: 20101221, end: 20110101
  7. ZOFRAN [Concomitant]
     Dates: start: 20091101
  8. MOTRIN [Concomitant]
     Dates: start: 20090401
  9. PROVIGIL [Suspect]
     Indication: FATIGUE
     Route: 048
  10. METOPROLOL SUCCINATE [Concomitant]
     Dates: start: 20090101

REACTIONS (3)
  - HEART RATE INCREASED [None]
  - ANXIETY [None]
  - POTENTIATING DRUG INTERACTION [None]
